FAERS Safety Report 14963422 (Version 6)
Quarter: 2019Q4

REPORT INFORMATION
  Report Type: Spontaneous
  Country: CA (occurrence: CA)
  Receive Date: 20180601
  Receipt Date: 20191211
  Transmission Date: 20200122
  Serious: Yes (Hospitalization, Other)
  Sender: FDA-Public Use
  Company Number: CA-CELLTRION INC.-2018CA018998

PATIENT

DRUGS (11)
  1. INFLECTRA [Suspect]
     Active Substance: INFLIXIMAB-DYYB
     Indication: ANKYLOSING SPONDYLITIS
     Dosage: 3 MG/KG, (EVERY 0, 2, 6 AND MAINTENANCE OF EVERY 8 WEEKS)
     Route: 042
     Dates: start: 20180328
  2. INFLECTRA [Suspect]
     Active Substance: INFLIXIMAB-DYYB
     Dosage: 3 MG/KG,  (EVERY 0, 2, 6 AND MAINTENANCE OF EVERY 8 WEEKS)
     Route: 042
     Dates: start: 20190927
  3. INFLECTRA [Suspect]
     Active Substance: INFLIXIMAB-DYYB
     Dosage: 3 MG/KG, (EVERY 0, 2, 6 AND MAINTENANCE OF EVERY 8 WEEKS)
     Route: 042
     Dates: start: 20181024
  4. INFLECTRA [Suspect]
     Active Substance: INFLIXIMAB-DYYB
     Dosage: 3 MG/KG,  (EVERY 0, 2, 6 AND MAINTENANCE OF EVERY 8 WEEKS)
     Route: 042
     Dates: start: 20181219
  5. INFLECTRA [Suspect]
     Active Substance: INFLIXIMAB-DYYB
     Dosage: 3 MG/KG,  (EVERY 0, 2, 6 AND MAINTENANCE OF EVERY 8 WEEKS)
     Route: 042
     Dates: start: 20190605
  6. INFLECTRA [Suspect]
     Active Substance: INFLIXIMAB-DYYB
     Dosage: 3 MG/KG,  (EVERY 0, 2, 6 AND MAINTENANCE OF EVERY 8 WEEKS)
     Route: 042
     Dates: start: 20190802
  7. ALLOPURINOL. [Concomitant]
     Active Substance: ALLOPURINOL
     Dosage: 200 MG, 1X/DAY
     Route: 048
  8. INFLECTRA [Suspect]
     Active Substance: INFLIXIMAB-DYYB
     Dosage: UNK
  9. PARIET [Concomitant]
     Active Substance: RABEPRAZOLE SODIUM
     Dosage: 20 MG, UNK
     Route: 048
  10. INFLECTRA [Suspect]
     Active Substance: INFLIXIMAB-DYYB
     Dosage: 3 MG/KG, (EVERY 0, 2, 6 AND MAINTENANCE OF EVERY 8 WEEKS)
     Route: 042
     Dates: start: 20180410
  11. SIMVASTATIN. [Concomitant]
     Active Substance: SIMVASTATIN
     Dosage: 20 MG, 1X/DAY
     Route: 048

REACTIONS (7)
  - Hernia [Unknown]
  - Pneumonia [Unknown]
  - Weight increased [Unknown]
  - Oedema peripheral [Unknown]
  - Weight decreased [Unknown]
  - Body temperature fluctuation [Unknown]
  - Off label use [Unknown]

NARRATIVE: CASE EVENT DATE: 20190927
